FAERS Safety Report 4512227-9 (Version None)
Quarter: 2004Q4

REPORT INFORMATION
  Report Type: 
  Country: None (occurrence: None)
  Receive Date: 20041123
  Receipt Date: 20041115
  Transmission Date: 20050328
  Serious: Yes (Other)
  Sender: FDA-Public Use
  Company Number: 200410610BYL

PATIENT
  Age: 77 Year
  Sex: Male

DRUGS (11)
  1. ADALAT CC [Suspect]
     Dosage: 20 MG, BID, ORAL
     Route: 048
     Dates: start: 19980501, end: 20040917
  2. DOGMATYL (SULPIRIDE) [Suspect]
     Dosage: 150 MG, TOTAL DAILY, ORAL
     Route: 048
     Dates: start: 19980501, end: 20040917
  3. AMOXAPINE [Suspect]
     Dosage: 75 MG, TOTAL DAILY, ORAL
     Route: 048
     Dates: start: 19980501, end: 20040917
  4. ANAFRANIL [Suspect]
     Dosage: 30 MG, TOTAL DAILY, ORAL
     Route: 048
     Dates: start: 19980501, end: 20040917
  5. SENIRAN (BROMAZEPAM) [Suspect]
     Dosage: 5 MG, TID, ORAL
     Route: 048
     Dates: start: 19980501, end: 20040917
  6. EVAMYL (LORMETAZEPAM) [Suspect]
     Dosage: 2 MG, TOTAL DAILY, ORAL
     Route: 048
     Dates: start: 19980501, end: 20040917
  7. AMITRIPTYLINE HYDROCHLORIDE [Suspect]
     Dosage: 20 MG, QD, ORAL
     Route: 048
     Dates: start: 19980501, end: 20040917
  8. WARFARIN SODIUM [Suspect]
     Dosage: 1 MG, QD, ORAL
     Route: 048
     Dates: start: 19980501, end: 20040917
  9. PARAMIDIN (BUCOLOME) [Suspect]
     Dosage: 300 MG, QD, ORAL
     Route: 048
     Dates: start: 19980501, end: 20040917
  10. LASIX [Suspect]
     Dosage: 20 MG, QD, ORAL
     Route: 048
     Dates: start: 19980501, end: 20040917
  11. EPHEDRA TEAS [Concomitant]

REACTIONS (1)
  - MOUTH HAEMORRHAGE [None]
